FAERS Safety Report 25097645 (Version 1)
Quarter: 2025Q1

REPORT INFORMATION
  Report Type: Spontaneous
  Country: US (occurrence: US)
  Receive Date: 20250320
  Receipt Date: 20250320
  Transmission Date: 20250409
  Serious: No
  Sender: AUROBINDO
  Company Number: US-AUROBINDO-AUR-APL-2024-048511

PATIENT
  Age: 68 Year
  Sex: Female

DRUGS (2)
  1. GABAPENTIN [Suspect]
     Active Substance: GABAPENTIN
     Indication: Back pain
     Dosage: 300 MILLIGRAM, 3 TIMES A DAY
     Route: 048
     Dates: start: 20240908
  2. GABAPENTIN [Suspect]
     Active Substance: GABAPENTIN
     Indication: Hypoaesthesia
     Dosage: 600 MILLIGRAM, 3 TIMES A DAY
     Route: 048

REACTIONS (3)
  - Insomnia [Not Recovered/Not Resolved]
  - Restlessness [Unknown]
  - Drug ineffective [Unknown]
